FAERS Safety Report 9990142 (Version 1)
Quarter: 2014Q1

REPORT INFORMATION
  Report Type: Spontaneous
  Country: US (occurrence: None)
  Receive Date: 20140123
  Receipt Date: 20140123
  Transmission Date: 20141002
  Serious: Yes (Hospitalization)
  Sender: FDA-Public Use
  Company Number: UTC-037017

PATIENT
  Age: 35 Year
  Sex: Female
  Weight: 57.72 kg

DRUGS (3)
  1. REMODULIN [Suspect]
     Indication: COR PULMONALE CHRONIC
     Dosage: 171.36 UG/KG (0.119 UG/KG, 1 IN 1 MIN)
     Route: 041
     Dates: start: 20100302
  2. REVATIO (SILDENAFIL CITRATE) [Concomitant]
  3. TRACLEER (BOSENTAN) [Concomitant]

REACTIONS (2)
  - Bacteraemia [None]
  - Injection site infection [None]
